FAERS Safety Report 4325696-4 (Version None)
Quarter: 2004Q1

REPORT INFORMATION
  Report Type: 
  Country: None (occurrence: None)
  Receive Date: 20040324
  Receipt Date: 20040309
  Transmission Date: 20041129
  Serious: Yes (Other)
  Sender: FDA-Public Use
  Company Number: S04-GER-01170-01

PATIENT
  Sex: Male

DRUGS (6)
  1. CIPRALEX (ESCITALOPRAM) [Suspect]
     Indication: DEPRESSION
     Dosage: 10 MG QD PO
     Route: 048
     Dates: start: 20040116, end: 20040206
  2. TETHEXAL (TETRAZEPAM) [Suspect]
     Indication: MUSCLE SPASMS
     Dosage: 50 MG QD PO
     Route: 048
     Dates: start: 20040110, end: 20040120
  3. TETHEXAL (TETRAZEPAM) [Suspect]
     Indication: MUSCLE SPASMS
     Dosage: 150 MG QD PO
     Route: 048
     Dates: start: 20040121, end: 20040207
  4. TETHEXAL (TETRAZEPAM) [Suspect]
     Indication: MUSCLE SPASMS
     Dosage: 150 MG QD
     Dates: start: 20040121, end: 20040206
  5. OMEP 20 (OMEPRAZOLE) [Concomitant]
  6. TEGRETOL [Concomitant]

REACTIONS (3)
  - DERMATITIS ALLERGIC [None]
  - EPIDERMOLYSIS [None]
  - PEMPHIGOID [None]
